FAERS Safety Report 12396611 (Version 5)
Quarter: 2016Q3

REPORT INFORMATION
  Report Type: Spontaneous
  Country: US (occurrence: US)
  Receive Date: 20160524
  Receipt Date: 20160817
  Transmission Date: 20161109
  Serious: Yes (Hospitalization, Other)
  Sender: FDA-Public Use
  Company Number: US-SHIRE-US201605933

PATIENT
  Age: 12 Year
  Sex: Male
  Weight: 66.98 kg

DRUGS (8)
  1. PRISTIQ EXTENDED-RELEASE [Suspect]
     Active Substance: DESVENLAFAXINE SUCCINATE
     Indication: DEPRESSION
     Dosage: 50 MG, 1X/DAY:QD
     Route: 048
     Dates: start: 20160116, end: 20160307
  2. VYVANSE [Suspect]
     Active Substance: LISDEXAMFETAMINE DIMESYLATE
     Indication: ATTENTION DEFICIT/HYPERACTIVITY DISORDER
     Dosage: 40 MG, 1X/DAY:QD
     Route: 048
     Dates: start: 20150826
  3. DESVENLAFAXINE                     /05742202/ [Suspect]
     Active Substance: DESVENLAFAXINE SUCCINATE
     Dosage: 35 MG, 1X/DAY:QD
     Route: 048
     Dates: start: 20150724, end: 20150814
  4. PRISTIQ EXTENDED-RELEASE [Suspect]
     Active Substance: DESVENLAFAXINE SUCCINATE
     Dosage: 100 MG, 1X/DAY:QD
     Route: 048
     Dates: start: 20160308
  5. DESVENLAFAXINE                     /05742202/ [Suspect]
     Active Substance: DESVENLAFAXINE SUCCINATE
     Indication: DEPRESSION
     Dosage: 25 MG, 1X/DAY:QD
     Route: 048
     Dates: start: 20150717, end: 20150723
  6. MELATONIN [Concomitant]
     Active Substance: MELATONIN
     Indication: INSOMNIA
     Dosage: 3 MG, 1X/DAY:QD (AT BEDTIME)
     Route: 048
     Dates: start: 20160212
  7. ABILIFY [Suspect]
     Active Substance: ARIPIPRAZOLE
     Indication: MOOD SWINGS
     Dosage: 2.5 MG, 1X/DAY:QD
     Route: 048
     Dates: start: 20160202, end: 20160305
  8. DESVENLAFAXINE                     /05742202/ [Suspect]
     Active Substance: DESVENLAFAXINE SUCCINATE
     Dosage: 50 MG, 1X/DAY:QD
     Route: 048
     Dates: start: 20150815, end: 20160115

REACTIONS (4)
  - Aggression [Recovering/Resolving]
  - Suicidal behaviour [Recovered/Resolved]
  - Bipolar disorder [Unknown]
  - Mania [Recovering/Resolving]

NARRATIVE: CASE EVENT DATE: 20160201
